FAERS Safety Report 18143562 (Version 1)
Quarter: 2020Q3

REPORT INFORMATION
  Report Type: Spontaneous
  Country: CN (occurrence: CN)
  Receive Date: 20200812
  Receipt Date: 20200812
  Transmission Date: 20201103
  Serious: Yes (Hospitalization, Other)
  Sender: FDA-Public Use
  Company Number: CN-BAXTER-2020BAX016143

PATIENT
  Age: 13 Year
  Sex: Female
  Weight: 40.5 kg

DRUGS (7)
  1. PEGASPARGASE [Suspect]
     Active Substance: PEGASPARGASE
     Indication: ACUTE LYMPHOCYTIC LEUKAEMIA
     Dosage: CTX + ARA?C + 6MP + VDS + PEG?ASP + IT REGIMEN
     Route: 030
     Dates: start: 20200610, end: 20200610
  2. VINDESINE SULFATE [Suspect]
     Active Substance: VINDESINE SULFATE
     Indication: ACUTE LYMPHOCYTIC LEUKAEMIA
     Dosage: VINDESINE SULFATE + NS, CTX + ARA?C + 6MP + VDS + PEG?ASP + IT REGIMEN
     Route: 042
     Dates: start: 20200610, end: 20200617
  3. ENDOXAN [Suspect]
     Active Substance: CYCLOPHOSPHAMIDE
     Indication: ACUTE LYMPHOCYTIC LEUKAEMIA
     Dosage: ENDOXAN + NS, CTX + ARA?C + 6MP + VDS + PEG?ASP + IT REGIMEN
     Route: 041
     Dates: start: 20200610, end: 20200610
  4. MERCAPTOPURINE. [Suspect]
     Active Substance: MERCAPTOPURINE
     Indication: ACUTE LYMPHOCYTIC LEUKAEMIA
     Dosage: TABLETS, CTX + ARA?C + 6MP + VDS + PEG?ASP + IT REGIMEN
     Route: 048
     Dates: start: 20200610, end: 20200616
  5. SODIUM CHLORIDE. [Suspect]
     Active Substance: SODIUM CHLORIDE
     Indication: MEDICATION DILUTION
     Dosage: ENDOXAN + NS, CTX + ARA?C + 6MP + VDS + PEG?ASP + IT REGIMEN
     Route: 041
     Dates: start: 20200610, end: 20200610
  6. SODIUM CHLORIDE. [Suspect]
     Active Substance: SODIUM CHLORIDE
     Dosage: VINDESINE SULFATE + NS, CTX + ARA?C + 6MP + VDS + PEG?ASP + IT REGIMEN
     Route: 042
     Dates: start: 20200610, end: 20200617
  7. CYTARABINE HYDROCHLORIDE [Suspect]
     Active Substance: CYTARABINE HYDROCHLORIDE
     Indication: ACUTE LYMPHOCYTIC LEUKAEMIA
     Dosage: CTX + ARA?C + 6MP + VDS + PEG?ASP + IT REGIMEN
     Route: 058
     Dates: start: 20200610, end: 20200616

REACTIONS (6)
  - Haemorrhage [Unknown]
  - Myelosuppression [Recovering/Resolving]
  - Rash [Unknown]
  - Mucosal discolouration [Unknown]
  - Pallor [Unknown]
  - Pyrexia [Recovered/Resolved]

NARRATIVE: CASE EVENT DATE: 20200620
